FAERS Safety Report 6544281-7 (Version None)
Quarter: 2010Q1

REPORT INFORMATION
  Report Type: 
  Country: None (occurrence: None)
  Receive Date: 20100115
  Receipt Date: 20091223
  Transmission Date: 20100710
  Serious: Yes (Hospitalization)
  Sender: FDA-Public Use
  Company Number: ADE2009-0473

PATIENT
  Age: 43 Year
  Sex: Male

DRUGS (8)
  1. FLUCONAZOLE [Suspect]
     Indication: ORAL CANDIDIASIS
  2. SIMVASTATIN [Suspect]
     Dosage: ORAL
     Route: 048
  3. CO-TRIMOXAZOLE [Suspect]
     Indication: ANTIFUNGAL PROPHYLAXIS
  4. ATENOLOL [Concomitant]
  5. CLOPIDOGREL [Concomitant]
  6. GLICLAZIDE [Concomitant]
  7. METFORMIN [Concomitant]
  8. RAMIPRIL [Concomitant]

REACTIONS (17)
  - ALANINE AMINOTRANSFERASE INCREASED [None]
  - BLOOD CREATININE INCREASED [None]
  - BLOOD POTASSIUM INCREASED [None]
  - BLOOD SODIUM DECREASED [None]
  - BLOOD UREA INCREASED [None]
  - CACHEXIA [None]
  - DECREASED APPETITE [None]
  - DISEASE RECURRENCE [None]
  - GENITAL HERPES [None]
  - HAEMOGLOBIN DECREASED [None]
  - HEPATITIS B SURFACE ANTIGEN POSITIVE [None]
  - HIV ANTIBODY POSITIVE [None]
  - ORAL CANDIDIASIS [None]
  - PENILE ULCERATION [None]
  - RESPIRATORY FAILURE [None]
  - TUBERCULOSIS [None]
  - WEIGHT DECREASED [None]
